FAERS Safety Report 23138779 (Version 2)
Quarter: 2023Q4

REPORT INFORMATION
  Report Type: Spontaneous
  Country: IT (occurrence: IT)
  Receive Date: 20231102
  Receipt Date: 20231122
  Transmission Date: 20240110
  Serious: Yes (Death, Other)
  Sender: FDA-Public Use
  Company Number: IT-BAXTER-2023BAX034657

PATIENT
  Age: 70 Year

DRUGS (4)
  1. OLIMEL E [Suspect]
     Active Substance: AMINO ACIDS\DEXTROSE\ELECTROLYTES NOS\SOYBEAN OIL
     Route: 065
  2. OLIMEL E [Suspect]
     Active Substance: AMINO ACIDS\DEXTROSE\ELECTROLYTES NOS\SOYBEAN OIL
     Dosage: 1 BAG, PARENTERAL ROUTE
     Route: 050
     Dates: start: 20230606, end: 20230620
  3. CERNEVIT [Suspect]
     Active Substance: VITAMINS
     Dosage: 1 VIAL
     Route: 065
  4. MINERALS [Suspect]
     Active Substance: MINERALS
     Dosage: 1 VIAL
     Route: 065

REACTIONS (4)
  - Death [Fatal]
  - Anaphylactic reaction [Unknown]
  - Erythema [Recovered/Resolved]
  - Pruritus [Recovered/Resolved]

NARRATIVE: CASE EVENT DATE: 20230606
